FAERS Safety Report 22671787 (Version 5)
Quarter: 2023Q4

REPORT INFORMATION
  Report Type: Other
  Country: US (occurrence: None)
  Receive Date: 20230705
  Receipt Date: 20231020
  Transmission Date: 20240110
  Serious: Yes (Other)
  Sender: FDA-Public Use
  Company Number: US-ROCHE-3382512

PATIENT
  Age: 44 Year
  Sex: Male

DRUGS (6)
  1. RITUXAN [Suspect]
     Active Substance: RITUXIMAB
     Indication: Waldenstrom^s macroglobulinaemia
     Dosage: DATE OF SERVICE: 27/JUN/2023, 25/JUL/2023 (600 MG), DATE OF SERVICE: 21-AUG-2023, 18/SEP/2023
     Route: 042
  2. ACYCLOVIR [Concomitant]
     Active Substance: ACYCLOVIR
  3. VITAMIN B12 [Concomitant]
     Active Substance: CYANOCOBALAMIN
  4. BACTRIM [Concomitant]
     Active Substance: SULFAMETHOXAZOLE\TRIMETHOPRIM
  5. ONDANSETRON [Concomitant]
     Active Substance: ONDANSETRON
  6. PROTONIX [Concomitant]
     Active Substance: PANTOPRAZOLE SODIUM

REACTIONS (2)
  - Off label use [Unknown]
  - Pancytopenia [Unknown]
